FAERS Safety Report 9165108 (Version 1)
Quarter: 2013Q1

REPORT INFORMATION
  Report Type: Spontaneous
  Country: IN (occurrence: None)
  Receive Date: 20130227
  Receipt Date: 20130227
  Transmission Date: 20140127
  Serious: Yes (Other)
  Sender: FDA-Public Use
  Company Number: NSR_01033_2013

PATIENT
  Age: 45 Year
  Sex: Female

DRUGS (1)
  1. FLUOXETINE [Suspect]
     Indication: OBSESSIVE-COMPULSIVE DISORDER
     Dates: start: 20120224

REACTIONS (6)
  - Respiratory tract infection [None]
  - White blood cell count decreased [None]
  - Eosinophil percentage decreased [None]
  - Lymphocyte percentage decreased [None]
  - Hepatic steatosis [None]
  - Neutrophil percentage decreased [None]
